FAERS Safety Report 13767236 (Version 2)
Quarter: 2017Q3

REPORT INFORMATION
  Report Type: Report from Study
  Country: CM (occurrence: CM)
  Receive Date: 20170719
  Receipt Date: 20170922
  Transmission Date: 20171127
  Serious: Yes (Hospitalization, Disabling, Other)
  Sender: FDA-Public Use
  Company Number: US-009507513-1707USA004814

PATIENT
  Age: 24 Year
  Sex: Male

DRUGS (1)
  1. IVERMECTIN. [Suspect]
     Active Substance: IVERMECTIN
     Dosage: 4 TABLETS, UNK
     Route: 048
     Dates: start: 20170710

REACTIONS (2)
  - Filariasis [Recovered/Resolved]
  - Depressed level of consciousness [Recovered/Resolved]

NARRATIVE: CASE EVENT DATE: 20170711
